FAERS Safety Report 7303636-3 (Version None)
Quarter: 2011Q1

REPORT INFORMATION
  Report Type: 
  Country: None (occurrence: None)
  Receive Date: 20110221
  Receipt Date: 20110208
  Transmission Date: 20110831
  Serious: Yes (Hospitalization)
  Sender: FDA-Public Use
  Company Number: PHHY2011JP06762

PATIENT
  Age: 63 Year
  Sex: Female
  Weight: 81 kg

DRUGS (8)
  1. MUCOSTA [Concomitant]
     Route: 048
  2. NAIXAN [Concomitant]
     Route: 048
  3. OXYCONTIN [Concomitant]
     Dosage: UNK
     Route: 048
     Dates: start: 20110107, end: 20110113
  4. ZANTAC [Concomitant]
     Route: 048
  5. ZOMETA [Suspect]
     Indication: METASTASES TO BONE
     Dosage: 4 MG, QMO
     Route: 041
     Dates: start: 20100519, end: 20101112
  6. BIOFERMIN [Concomitant]
     Route: 048
  7. PACLITAXEL [Concomitant]
  8. BETAMETHASONE [Concomitant]
     Route: 048

REACTIONS (4)
  - PURULENT DISCHARGE [None]
  - PAIN IN JAW [None]
  - OEDEMA MOUTH [None]
  - OSTEONECROSIS OF JAW [None]
